FAERS Safety Report 16145986 (Version 1)
Quarter: 2019Q2

REPORT INFORMATION
  Report Type: Spontaneous
  Country: FR (occurrence: FR)
  Receive Date: 20190402
  Receipt Date: 20190402
  Transmission Date: 20190711
  Serious: Yes (Hospitalization)
  Sender: FDA-Public Use
  Company Number: FR-ACCORD-117253

PATIENT
  Age: 78 Year
  Sex: Female
  Weight: 68 kg

DRUGS (17)
  1. DIFFU K [Concomitant]
     Active Substance: POTASSIUM CHLORIDE
     Route: 048
  2. SIMVASTATIN. [Concomitant]
     Active Substance: SIMVASTATIN
     Route: 048
  3. PARACETAMOL [Concomitant]
     Active Substance: ACETAMINOPHEN
     Route: 048
  4. PANTOPRAZOLE [Concomitant]
     Active Substance: PANTOPRAZOLE
     Route: 048
  5. EZETIMIBE. [Concomitant]
     Active Substance: EZETIMIBE
     Route: 048
  6. OXALIPLATINE ARROW [Suspect]
     Active Substance: OXALIPLATIN
     Indication: PRODUCT USED FOR UNKNOWN INDICATION
     Dosage: 149+145+148 MG, ALSO 346 MG(350+342+348 MG)
     Route: 042
     Dates: start: 20181024, end: 20181121
  7. SODIUM ALGINATE [Concomitant]
     Active Substance: SODIUM ALGINATE
     Route: 048
  8. CALCIUM LEVOFOLINATE ZENTIVA [Suspect]
     Active Substance: LEVOLEUCOVORIN CALCIUM
     Indication: PRODUCT USED FOR UNKNOWN INDICATION
     Dosage: 350+342+348 MG
     Route: 042
     Dates: start: 20181024, end: 20181121
  9. OXALIPLATINE [Suspect]
     Active Substance: OXALIPLATIN
     Indication: PRODUCT USED FOR UNKNOWN INDICATION
     Dosage: 350+342+348 MG
     Route: 042
     Dates: start: 20181024, end: 20181121
  10. LEVOFOLINATE CALCIQUE PENTAHYDRATE [Suspect]
     Active Substance: LEUCOVORIN CALCIUM
     Indication: PRODUCT USED FOR UNKNOWN INDICATION
     Dosage: 350+342+348 MG
     Route: 042
     Dates: start: 20181024, end: 20181121
  11. DOCETAXEL. [Suspect]
     Active Substance: DOCETAXEL
     Indication: PRODUCT USED FOR UNKNOWN INDICATION
     Dosage: STRENGTH 160 MG / 8 ML, 88+64+67 MG
     Route: 042
     Dates: start: 20181024, end: 20181121
  12. AMLODIPINE [Concomitant]
     Active Substance: AMLODIPINE BESYLATE
     Route: 048
  13. FLUOROURACILE ARROW [Suspect]
     Active Substance: FLUOROURACIL
     Indication: PRODUCT USED FOR UNKNOWN INDICATION
     Dosage: 4550+4446+4524 MG, ALSO TAKEN 346 MG(350+342+348 MG)
     Route: 042
     Dates: start: 20181024, end: 20181121
  14. INDAPAMIDE. [Concomitant]
     Active Substance: INDAPAMIDE
     Route: 048
  15. LEVOTHYROX [Concomitant]
     Active Substance: LEVOTHYROXINE
     Route: 048
  16. FLUOROURACILE [Suspect]
     Active Substance: FLUOROURACIL
     Indication: PRODUCT USED FOR UNKNOWN INDICATION
     Dosage: 350+342+348 MG
     Route: 042
     Dates: start: 20181024, end: 20181121
  17. OXYBUTYNIN. [Concomitant]
     Active Substance: OXYBUTYNIN CHLORIDE
     Route: 048

REACTIONS (2)
  - Hypokalaemia [Recovering/Resolving]
  - Diarrhoea [Recovering/Resolving]

NARRATIVE: CASE EVENT DATE: 20181129
